FAERS Safety Report 15405506 (Version 1)
Quarter: 2018Q3

REPORT INFORMATION
  Report Type: Report from Study
  Country: TR (occurrence: TR)
  Receive Date: 20180920
  Receipt Date: 20180920
  Transmission Date: 20181010
  Serious: Yes (Hospitalization, Other)
  Sender: FDA-Public Use
  Company Number: TR-ACCORD-071731

PATIENT
  Age: 72 Year
  Sex: Female

DRUGS (6)
  1. ACARBOSE. [Concomitant]
     Active Substance: ACARBOSE
  2. CICLOSPORIN [Concomitant]
     Active Substance: CYCLOSPORINE
  3. FOLATE SODIUM/FOLIC ACID [Concomitant]
  4. METHOTREXATE. [Suspect]
     Active Substance: METHOTREXATE
     Indication: PRODUCT USED FOR UNKNOWN INDICATION
  5. PREDNISONE. [Concomitant]
     Active Substance: PREDNISONE
  6. DICLOFENAC [Concomitant]
     Active Substance: DICLOFENAC

REACTIONS (2)
  - Mucosal inflammation [Recovered/Resolved]
  - Hepatotoxicity [Recovered/Resolved]
